FAERS Safety Report 25958249 (Version 1)
Quarter: 2025Q4

REPORT INFORMATION
  Report Type: Spontaneous
  Country: JP (occurrence: JP)
  Receive Date: 20251024
  Receipt Date: 20251024
  Transmission Date: 20260117
  Serious: Yes (Other)
  Sender: ROCHE
  Company Number: JP-CHUGAI-2025032886

PATIENT
  Sex: Male

DRUGS (3)
  1. LUNSUMIO [Suspect]
     Active Substance: MOSUNETUZUMAB-AXGB
     Indication: Follicular lymphoma
     Dosage: 60 MILLIGRAM
     Route: 042
  2. LUNSUMIO [Suspect]
     Active Substance: MOSUNETUZUMAB-AXGB
     Dosage: 30 MILLIGRAM
     Route: 042
  3. LUNSUMIO [Suspect]
     Active Substance: MOSUNETUZUMAB-AXGB
     Dosage: 30 MILLIGRAM
     Route: 042
     Dates: start: 20251008

REACTIONS (5)
  - Erythema [Unknown]
  - Metastatic neoplasm [Unknown]
  - Skin disorder [Recovering/Resolving]
  - Neurotoxicity [Unknown]
  - Pyrexia [Not Recovered/Not Resolved]

NARRATIVE: CASE EVENT DATE: 20251009
